FAERS Safety Report 23455864 (Version 13)
Quarter: 2024Q3

REPORT INFORMATION
  Report Type: Spontaneous
  Country: CA (occurrence: CA)
  Receive Date: 20240130
  Receipt Date: 20240927
  Transmission Date: 20241016
  Serious: Yes (Hospitalization, Other)
  Sender: CELLTRION
  Company Number: CA-CELLTRION INC.-2023CA022254

PATIENT

DRUGS (26)
  1. INFLECTRA [Suspect]
     Active Substance: INFLIXIMAB-DYYB
     Indication: Crohn^s disease
     Dosage: 500 MG, 0 AND 2 WEEK
     Route: 042
     Dates: start: 20210817
  2. INFLECTRA [Suspect]
     Active Substance: INFLIXIMAB-DYYB
     Dosage: 500 MG, 0 AND 2 WEEK
     Route: 042
     Dates: start: 20210903
  3. INFLECTRA [Suspect]
     Active Substance: INFLIXIMAB-DYYB
     Dosage: 600 MG, EVERY 6 WEEKS, THEN EVERY 8 WEEKS
     Route: 042
     Dates: start: 20210929
  4. INFLECTRA [Suspect]
     Active Substance: INFLIXIMAB-DYYB
     Dosage: 600 MG, EVERY 6 WEEKS, THEN EVERY 8 WEEKS
     Route: 042
     Dates: start: 20211126
  5. INFLECTRA [Suspect]
     Active Substance: INFLIXIMAB-DYYB
     Dosage: 600 MG, EVERY 6 WEEKS
     Route: 042
     Dates: start: 20220208
  6. INFLECTRA [Suspect]
     Active Substance: INFLIXIMAB-DYYB
     Dosage: 600 MG, EVERY 6 WEEKS
     Route: 042
     Dates: start: 20221021
  7. INFLECTRA [Suspect]
     Active Substance: INFLIXIMAB-DYYB
     Dosage: 10 MG/KG, EVERY 4 WEEKS
     Route: 042
     Dates: start: 20221206
  8. INFLECTRA [Suspect]
     Active Substance: INFLIXIMAB-DYYB
     Dosage: 10 MG/KG, EVERY 4 WEEKS
     Route: 042
     Dates: start: 20231005
  9. INFLECTRA [Suspect]
     Active Substance: INFLIXIMAB-DYYB
     Dosage: 10 MG/KG, EVERY 4 WEEKS
     Route: 042
     Dates: start: 20231005
  10. INFLECTRA [Suspect]
     Active Substance: INFLIXIMAB-DYYB
     Dosage: 10 MG/KG, AFTER 1 WEEK AND 5 DAYS (RX WAS EVERY 4 WEEKS)
     Route: 042
     Dates: start: 20231017
  11. INFLECTRA [Suspect]
     Active Substance: INFLIXIMAB-DYYB
     Dosage: 1700 MG, AFTER 5 WEEKS AND 2 DAYS (RX WAS EVERY 4 WEEKS)
     Route: 042
     Dates: start: 20231123
  12. INFLECTRA [Suspect]
     Active Substance: INFLIXIMAB-DYYB
     Dosage: 1700 MG, AFTER 5 WEEKS AND 2 DAYS (RX WAS EVERY 4 WEEKS)
     Route: 042
     Dates: start: 20231123
  13. INFLECTRA [Suspect]
     Active Substance: INFLIXIMAB-DYYB
     Dosage: 10 MG/KG (1650 MG) AFTER 6 WEEKS AND 5 DAYS (RX WAS EVERY 4 WEEKS)
     Route: 042
     Dates: start: 20240109
  14. INFLECTRA [Suspect]
     Active Substance: INFLIXIMAB-DYYB
     Dosage: 10 MG/KG (1600 MG), AFTER 8 WEEKS (RX WAS EVERY 4 WEEKS)
     Route: 042
     Dates: start: 20240305
  15. INFLECTRA [Suspect]
     Active Substance: INFLIXIMAB-DYYB
     Dosage: 1600 MG (10 MG/KG), AFTER 8 WEEKS (RX WAS EVERY 4 WEEKS)
     Route: 042
     Dates: start: 20240305
  16. INFLECTRA [Suspect]
     Active Substance: INFLIXIMAB-DYYB
     Dosage: 1600 MG, EVERY 4 WEEKS
     Route: 042
     Dates: start: 20240402
  17. INFLECTRA [Suspect]
     Active Substance: INFLIXIMAB-DYYB
     Dosage: 10 MG/KG (1620 MG), EVERY 4 WEEKS
     Route: 042
     Dates: start: 20240430, end: 20240430
  18. INFLECTRA [Suspect]
     Active Substance: INFLIXIMAB-DYYB
     Dosage: 10 MG/KG (1620 MG), EVERY 4 WEEKS
     Route: 042
     Dates: start: 20240430, end: 20240430
  19. INFLECTRA [Suspect]
     Active Substance: INFLIXIMAB-DYYB
     Dosage: 10 MG/KG (1650 MG), EVERY 4 WEEKS
     Route: 042
     Dates: start: 20240528
  20. INFLECTRA [Suspect]
     Active Substance: INFLIXIMAB-DYYB
     Dosage: 1680 MG (10 MG/KG), AFTER 4 WEEKS AND 1 DAY (PRESCRIBED WAS Q 4 WEEKS)
     Route: 042
     Dates: start: 20240626
  21. INFLECTRA [Suspect]
     Active Substance: INFLIXIMAB-DYYB
     Dosage: 1720 MG (10 MG/KG), EVERY 4 WEEK
     Route: 042
     Dates: start: 20240723
  22. INFLECTRA [Suspect]
     Active Substance: INFLIXIMAB-DYYB
     Dosage: 1720 MG (10 MG/KG), EVERY 4 WEEK
     Route: 042
     Dates: start: 20240723
  23. INFLECTRA [Suspect]
     Active Substance: INFLIXIMAB-DYYB
     Dosage: 1690 MG (10 MG/KG), EVERY 4 WEEKS
     Route: 042
     Dates: start: 20240820
  24. INFLECTRA [Suspect]
     Active Substance: INFLIXIMAB-DYYB
     Dosage: 1690 MG (10 MG/KG), EVERY 4 WEEKS
     Route: 042
     Dates: start: 20240820
  25. INFLECTRA [Suspect]
     Active Substance: INFLIXIMAB-DYYB
     Dosage: 1720 MG, 4 WEEKS (10MG/KG, EVERY 4 WEEK)
     Route: 042
     Dates: start: 20240917
  26. PENTASA [Concomitant]
     Active Substance: MESALAMINE
     Dosage: 1 DF, DOSAGE INFO IS NOT AVAILABLE
     Route: 065

REACTIONS (13)
  - Testicular disorder [Recovering/Resolving]
  - Rib excision [Recovered/Resolved]
  - Infection [Recovered/Resolved]
  - Nasopharyngitis [Recovered/Resolved]
  - Erythema nodosum [Recovered/Resolved]
  - Cough [Recovered/Resolved]
  - Dermatitis [Not Recovered/Not Resolved]
  - Sinusitis [Recovered/Resolved]
  - Condition aggravated [Recovering/Resolving]
  - Arthralgia [Not Recovered/Not Resolved]
  - Off label use [Unknown]
  - Intentional product use issue [Unknown]
  - Off label use [Unknown]

NARRATIVE: CASE EVENT DATE: 20231001
